FAERS Safety Report 6035165-1 (Version None)
Quarter: 2009Q1

REPORT INFORMATION
  Report Type: 
  Country: None (occurrence: None)
  Receive Date: 20090112
  Receipt Date: 20090105
  Transmission Date: 20090719
  Serious: Yes (Hospitalization)
  Sender: FDA-Public Use
  Company Number: US-ROXANE LABORATORIES, INC.-2008-RO-00469RO

PATIENT
  Sex: Male
  Weight: 73 kg

DRUGS (14)
  1. PREDNISONE TAB [Suspect]
     Indication: PROSTATE CANCER METASTATIC
     Dosage: 5MG
     Route: 048
     Dates: start: 20081125, end: 20081130
  2. PREDNISONE TAB [Suspect]
     Dates: start: 20081211
  3. PLACEBO [Suspect]
     Indication: PROSTATE CANCER METASTATIC
     Route: 048
     Dates: start: 20081124, end: 20081124
  4. PLACEBO [Suspect]
     Route: 048
     Dates: start: 20081125, end: 20081130
  5. PLACEBO [Suspect]
     Dates: start: 20081211
  6. DOCETAXEL [Suspect]
     Indication: PROSTATE CANCER METASTATIC
     Route: 042
     Dates: start: 20081125, end: 20081125
  7. DOCETAXEL [Suspect]
     Dates: start: 20081211
  8. ALTACE [Concomitant]
  9. ASPIRIN [Concomitant]
     Dates: end: 20081130
  10. CRESTOR [Concomitant]
  11. FINASTERIDE [Concomitant]
  12. VESICARE [Concomitant]
  13. VITAMIN D [Concomitant]
  14. IRON [Concomitant]

REACTIONS (3)
  - FAECALOMA [None]
  - HYPOKALAEMIA [None]
  - INTESTINAL FUNCTIONAL DISORDER [None]
